FAERS Safety Report 5078318-1 (Version None)
Quarter: 2006Q3

REPORT INFORMATION
  Report Type: 
  Country: None (occurrence: None)
  Receive Date: 20060811
  Receipt Date: 20060803
  Transmission Date: 20061208
  Serious: Yes (Disabling)
  Sender: FDA-Public Use
  Company Number: JP-JNJFOC-20060801292

PATIENT
  Sex: Female
  Weight: 62 kg

DRUGS (18)
  1. REMICADE [Suspect]
     Route: 042
  2. REMICADE [Suspect]
     Dosage: 8 INFUSIONS ON UNSPECIFED DATES
     Route: 042
  3. REMICADE [Suspect]
     Route: 042
  4. REMICADE [Suspect]
     Route: 042
  5. REMICADE [Suspect]
     Route: 042
  6. REMICADE [Suspect]
     Route: 042
  7. REMICADE [Suspect]
     Route: 042
  8. REMICADE [Suspect]
     Indication: RHEUMATOID ARTHRITIS
     Route: 042
  9. METHOTREXATE [Suspect]
     Route: 048
  10. METHOTREXATE [Suspect]
     Route: 048
  11. METHOTREXATE [Suspect]
     Route: 048
  12. METHOTREXATE [Suspect]
     Indication: RHEUMATOID ARTHRITIS
     Route: 048
  13. ADRENAL HORMONE PREPARATION [Concomitant]
     Indication: RHEUMATOID ARTHRITIS
  14. PREDNISOLONE [Concomitant]
     Indication: RHEUMATOID ARTHRITIS
     Route: 048
  15. FOLIAMIN [Concomitant]
     Route: 048
  16. BONALON [Concomitant]
     Route: 048
  17. ROCALTROL [Concomitant]
     Route: 048
  18. MUCOSTA [Concomitant]
     Route: 048

REACTIONS (1)
  - LYMPHOMA [None]
